FAERS Safety Report 10162362 (Version 2)
Quarter: 2014Q2

REPORT INFORMATION
  Report Type: Spontaneous
  Country: FR (occurrence: FR)
  Receive Date: 20140509
  Receipt Date: 20140509
  Transmission Date: 20141212
  Serious: Yes (Life-Threatening, Hospitalization, Other)
  Sender: FDA-Public Use
  Company Number: FR-SA-2014SA025636

PATIENT
  Age: 34 Year
  Sex: Female

DRUGS (9)
  1. RIFATER [Suspect]
     Indication: PULMONARY TUBERCULOSIS
     Dosage: DOSE:5 UNIT(S)
     Route: 048
     Dates: start: 20131221, end: 20140121
  2. DACRYOSERUM [Suspect]
     Indication: PRODUCT USED FOR UNKNOWN INDICATION
     Route: 065
  3. ETHINYLESTRADIOL/LEVONORGESTREL [Concomitant]
     Indication: ORAL CONTRACEPTION
     Route: 048
  4. BECILAN [Concomitant]
     Route: 048
  5. ETHAMBUTOL [Concomitant]
     Indication: PULMONARY TUBERCULOSIS
     Route: 048
     Dates: start: 20131221, end: 20140102
  6. DEXERYL [Concomitant]
     Dosage: ROUTE: CUT
  7. ATARAX [Concomitant]
     Indication: PRURITUS
     Dosage: STRENGTH: 25MG
     Route: 048
  8. DOLIPRANE [Concomitant]
  9. XYZALL [Concomitant]
     Indication: PRURITUS

REACTIONS (9)
  - Drug reaction with eosinophilia and systemic symptoms [Recovered/Resolved]
  - Hepatitis fulminant [Recovered/Resolved]
  - Rash maculo-papular [Recovered/Resolved]
  - Pyrexia [Recovered/Resolved]
  - Jaundice [Recovered/Resolved]
  - Eosinophilia [Recovered/Resolved]
  - Pruritus [Unknown]
  - Human herpes virus 6 serology positive [Unknown]
  - Hepatic encephalopathy [Unknown]
